FAERS Safety Report 18912856 (Version 2)
Quarter: 2021Q1

REPORT INFORMATION
  Report Type: Report from Study
  Country: None (occurrence: US)
  Receive Date: 20210219
  Receipt Date: 20210302
  Transmission Date: 20210420
  Serious: Yes (Other)
  Sender: FDA-Public Use
  Company Number: US-ABBVIE-21K-163-3778937-00

PATIENT
  Age: 53 Year
  Sex: Female

DRUGS (2)
  1. VENCLEXTA [Suspect]
     Active Substance: VENETOCLAX
     Route: 048
  2. VENCLEXTA [Suspect]
     Active Substance: VENETOCLAX
     Indication: CHRONIC LYMPHOCYTIC LEUKAEMIA RECURRENT
     Route: 048
     Dates: start: 20210129

REACTIONS (10)
  - Migraine [Recovering/Resolving]
  - Poor quality sleep [Unknown]
  - Fatigue [Unknown]
  - Malaise [Unknown]
  - Lymphadenopathy [Unknown]
  - Dyspnoea [Unknown]
  - Arthralgia [Unknown]
  - Axillary pain [Unknown]
  - Red blood cell abnormality [Unknown]
  - Abdominal pain [Unknown]

NARRATIVE: CASE EVENT DATE: 2021
